FAERS Safety Report 7101134-3 (Version None)
Quarter: 2010Q4

REPORT INFORMATION
  Report Type: 
  Country: None (occurrence: None)
  Receive Date: 20101105
  Receipt Date: 20101022
  Transmission Date: 20110411
  Serious: Yes (Other)
  Sender: FDA-Public Use
  Company Number: 1000016976

PATIENT
  Age: 45 Year
  Sex: Male
  Weight: 69 kg

DRUGS (3)
  1. ESCITALOPRAM [Suspect]
     Indication: DEPRESSION
     Dosage: 10 MG (10 MG,1 IN 1 D),ORAL
     Route: 048
     Dates: start: 20100901
  2. SUPRADYN (SUPRADYN) (TABLETS) (SUPRADYN) [Concomitant]
  3. LANSOR (LANSOPRAZOLE) (TABLETS) (LANSOPRAZOLE) [Concomitant]

REACTIONS (1)
  - CATARACT [None]
